FAERS Safety Report 24915604 (Version 1)
Quarter: 2025Q1

REPORT INFORMATION
  Report Type: Spontaneous
  Country: ES (occurrence: ES)
  Receive Date: 20250203
  Receipt Date: 20250203
  Transmission Date: 20250408
  Serious: Yes (Other)
  Sender: BIOCON
  Company Number: ES-BIOCON-BCN-2025-000030

PATIENT
  Age: 16 Year
  Sex: Male

DRUGS (2)
  1. FINGOLIMOD [Suspect]
     Active Substance: FINGOLIMOD
     Indication: Multiple sclerosis
  2. CORTICOSTEROID NOS [Concomitant]
     Active Substance: CORTICOSTEROID NOS
     Indication: Multiple sclerosis

REACTIONS (2)
  - Cholangitis sclerosing [Recovering/Resolving]
  - Autoimmune hepatitis [Recovering/Resolving]
